FAERS Safety Report 10790167 (Version 1)
Quarter: 2015Q1

REPORT INFORMATION
  Report Type: Spontaneous
  Country: US (occurrence: US)
  Receive Date: 20150212
  Receipt Date: 20150212
  Transmission Date: 20150721
  Serious: No
  Sender: FDA-Public Use
  Company Number: US-GLAXOSMITHKLINE-A1075872A

PATIENT

DRUGS (1)
  1. ALBUTEROL. [Suspect]
     Active Substance: ALBUTEROL
     Indication: CHRONIC OBSTRUCTIVE PULMONARY DISEASE
     Route: 065

REACTIONS (12)
  - Bronchitis [Unknown]
  - Sputum discoloured [Unknown]
  - Chest discomfort [Unknown]
  - Fatigue [Unknown]
  - Chronic obstructive pulmonary disease [Unknown]
  - Dyspnoea [Unknown]
  - Decreased appetite [Unknown]
  - Productive cough [Unknown]
  - Insomnia [Unknown]
  - Cough [Unknown]
  - Weight decreased [Unknown]
  - Blood pressure increased [Unknown]
